FAERS Safety Report 8503636-1 (Version None)
Quarter: 2012Q3

REPORT INFORMATION
  Report Type: 
  Country: None (occurrence: None)
  Receive Date: 20120711
  Receipt Date: 20120626
  Transmission Date: 20120928
  Serious: Yes (Hospitalization)
  Sender: FDA-Public Use
  Company Number: IN-WATSON-2012-11515

PATIENT
  Age: 6 Year
  Sex: Male
  Weight: 24 kg

DRUGS (2)
  1. ERYTHROMYCIN [Suspect]
     Indication: PYREXIA
     Dosage: UNK
     Route: 065
  2. MIDAZOLAM [Suspect]
     Indication: SEDATIVE THERAPY
     Dosage: 0.5 MG/KG, UNK
     Route: 048

REACTIONS (2)
  - DRUG INTERACTION [None]
  - SEDATION [None]
